FAERS Safety Report 8619612-4 (Version None)
Quarter: 2012Q3

REPORT INFORMATION
  Report Type: 
  Country: None (occurrence: None)
  Receive Date: 20120824
  Receipt Date: 20120820
  Transmission Date: 20120928
  Serious: Yes (Life-Threatening, Other)
  Sender: FDA-Public Use
  Company Number: FR-JNJFOC-20120404176

PATIENT
  Sex: Male
  Weight: 60 kg

DRUGS (5)
  1. ZYTIGA [Suspect]
     Indication: PROSTATE CANCER
     Route: 048
     Dates: start: 20111219, end: 20120320
  2. PREDNISOLONE [Concomitant]
     Indication: GENERAL PHYSICAL HEALTH DETERIORATION
     Route: 048
  3. ZOMETA [Concomitant]
     Indication: METASTASES TO BONE
     Route: 048
  4. ACETAMINOPHEN [Concomitant]
     Indication: METASTASES TO BONE
     Route: 048
  5. MORPHINE SULFATE [Concomitant]
     Indication: METASTASES TO BONE
     Route: 048

REACTIONS (1)
  - HEPATIC FAILURE [None]
